FAERS Safety Report 14133975 (Version 1)
Quarter: 2017Q4

REPORT INFORMATION
  Report Type: Spontaneous
  Country: US (occurrence: None)
  Receive Date: 20171027
  Receipt Date: 20171027
  Transmission Date: 20180321
  Serious: No
  Sender: FDA-Public Use
  Company Number: None

PATIENT
  Age: 56 Year
  Sex: Male

DRUGS (1)
  1. HARVONI [Suspect]
     Active Substance: LEDIPASVIR\SOFOSBUVIR
     Dosage: HARVONI 90/400 DAILY ORAL
     Route: 048

REACTIONS (2)
  - Oedema peripheral [None]
  - Joint swelling [None]

NARRATIVE: CASE EVENT DATE: 20171026
